FAERS Safety Report 16803915 (Version 1)
Quarter: 2019Q3

REPORT INFORMATION
  Report Type: Spontaneous
  Country: US (occurrence: US)
  Receive Date: 20190913
  Receipt Date: 20190913
  Transmission Date: 20191005
  Serious: Yes (Hospitalization, Other)
  Sender: FDA-Public Use
  Company Number: US-ROCHE-2403696

PATIENT
  Sex: Female
  Weight: 83.99 kg

DRUGS (4)
  1. ETOPOSIDE. [Concomitant]
     Active Substance: ETOPOSIDE
     Indication: NON-HODGKIN^S LYMPHOMA RECURRENT
     Dosage: ONGOING; NO
     Route: 065
     Dates: start: 20171113, end: 201805
  2. IFOSFAMIDE. [Concomitant]
     Active Substance: IFOSFAMIDE
     Indication: NON-HODGKIN^S LYMPHOMA RECURRENT
     Dosage: ONGOING; NO
     Route: 065
     Dates: start: 20171113, end: 201805
  3. CARBOPLATIN. [Concomitant]
     Active Substance: CARBOPLATIN
     Indication: NON-HODGKIN^S LYMPHOMA RECURRENT
     Dosage: ONGOING; NO
     Route: 065
     Dates: start: 20171113, end: 201805
  4. RITUXAN [Suspect]
     Active Substance: RITUXIMAB
     Indication: NON-HODGKIN^S LYMPHOMA RECURRENT
     Dosage: 1ST 2 WAS 3 WEEKS ;ONGOING: NO
     Route: 042
     Dates: start: 20171113, end: 201805

REACTIONS (6)
  - Fatigue [Not Recovered/Not Resolved]
  - Sepsis [Recovered/Resolved]
  - Febrile neutropenia [Recovered/Resolved]
  - Inflammation [Recovered/Resolved]
  - Infection [Recovered/Resolved]
  - Neutropenia [Not Recovered/Not Resolved]
